FAERS Safety Report 10681893 (Version 1)
Quarter: 2014Q4

REPORT INFORMATION
  Report Type: Spontaneous
  Country: TR (occurrence: None)
  Receive Date: 20141224
  Receipt Date: 20141224
  Transmission Date: 20150529
  Serious: Yes (Other)
  Sender: FDA-Public Use
  Company Number: FK201406460

PATIENT
  Age: 58 Year
  Sex: Male

DRUGS (2)
  1. METHOTREXATE (MANUFACTURER UNKNOWN) (METHOTREXATE) (METHOTREXATE) [Suspect]
     Active Substance: METHOTREXATE
     Indication: MYCOSIS FUNGOIDES
  2. BEXAROTENE [Concomitant]
     Active Substance: BEXAROTENE

REACTIONS (4)
  - Weight decreased [None]
  - Mouth ulceration [None]
  - Genital ulceration [None]
  - Anaemia [None]
